FAERS Safety Report 13754080 (Version 2)
Quarter: 2017Q3

REPORT INFORMATION
  Report Type: Spontaneous
  Country: US (occurrence: US)
  Receive Date: 20170713
  Receipt Date: 20170714
  Transmission Date: 20171127
  Serious: Yes (Hospitalization)
  Sender: FDA-Public Use
  Company Number: US-CELGENEUS-USA-20170701542

PATIENT
  Age: 51 Year
  Sex: Female
  Weight: 68.55 kg

DRUGS (1)
  1. OTEZLA [Suspect]
     Active Substance: APREMILAST
     Indication: PSORIASIS
     Dosage: 60 MILLIGRAM
     Route: 048

REACTIONS (4)
  - Pancreatic enzymes increased [Unknown]
  - Spinal fracture [Unknown]
  - Fall [Unknown]
  - Depression [Unknown]

NARRATIVE: CASE EVENT DATE: 20170509
